FAERS Safety Report 19474075 (Version 1)
Quarter: 2021Q2

REPORT INFORMATION
  Report Type: Spontaneous
  Country: US (occurrence: US)
  Receive Date: 20210629
  Receipt Date: 20210629
  Transmission Date: 20210717
  Serious: No
  Sender: FDA-Public Use
  Company Number: US-DRREDDYS-SPO/USA/21/0136953

PATIENT
  Age: 64 Year
  Sex: Female
  Weight: 72 kg

DRUGS (3)
  1. LIPITOR [Concomitant]
     Active Substance: ATORVASTATIN CALCIUM
     Indication: PRODUCT USED FOR UNKNOWN INDICATION
  2. SYNTHROID [Concomitant]
     Active Substance: LEVOTHYROXINE SODIUM
     Indication: PRODUCT USED FOR UNKNOWN INDICATION
  3. HABITROL [Suspect]
     Active Substance: NICOTINE
     Indication: TOBACCO USER
     Dosage: ONE WEEK AGO
     Route: 062
     Dates: start: 202106

REACTIONS (3)
  - Product use issue [Unknown]
  - Product adhesion issue [Unknown]
  - Product administration interrupted [Unknown]
